FAERS Safety Report 17560822 (Version 1)
Quarter: 2020Q1

REPORT INFORMATION
  Report Type: Report from Study
  Country: US (occurrence: US)
  Receive Date: 20200319
  Receipt Date: 20200319
  Transmission Date: 20200409
  Serious: Yes (Other)
  Sender: FDA-Public Use
  Company Number: US-KYOWAKIRIN-2019BKK021083

PATIENT

DRUGS (1)
  1. CRYSVITA [Suspect]
     Active Substance: BUROSUMAB-TWZA
     Indication: PRODUCT USED FOR UNKNOWN INDICATION
     Dosage: UNK
     Route: 065

REACTIONS (9)
  - Bone pain [Not Recovered/Not Resolved]
  - Walking disability [Not Recovered/Not Resolved]
  - Osteomalacia [Not Recovered/Not Resolved]
  - Dysarthria [Not Recovered/Not Resolved]
  - Slow speech [Not Recovered/Not Resolved]
  - Arthralgia [Not Recovered/Not Resolved]
  - Fracture [Not Recovered/Not Resolved]
  - Gingival disorder [Not Recovered/Not Resolved]
  - Depression [Not Recovered/Not Resolved]
